FAERS Safety Report 26183774 (Version 2)
Quarter: 2025Q4

REPORT INFORMATION
  Report Type: Report from Study
  Country: US (occurrence: US)
  Receive Date: 20251221
  Receipt Date: 20251224
  Transmission Date: 20260117
  Serious: Yes (Other)
  Sender: ABBVIE
  Company Number: US-ABBVIE-6599353

PATIENT
  Age: 53 Year
  Sex: Male

DRUGS (1)
  1. QULIPTA [Suspect]
     Active Substance: ATOGEPANT
     Indication: Product used for unknown indication
     Route: 048
     Dates: start: 20251201

REACTIONS (2)
  - Carpal tunnel syndrome [Recovering/Resolving]
  - Trigger finger [Recovering/Resolving]

NARRATIVE: CASE EVENT DATE: 20251217
